FAERS Safety Report 8708084 (Version 2)
Quarter: 2013Q4

REPORT INFORMATION
  Report Type: Spontaneous
  Country: JP (occurrence: JP)
  Receive Date: 20120806
  Receipt Date: 20131107
  Transmission Date: 20140711
  Serious: Yes (Other)
  Sender: FDA-Public Use
  Company Number: JP-MSD-1207JPN006147

PATIENT
  Age: 62 Year
  Sex: Male
  Weight: 70.4 kg

DRUGS (4)
  1. PEGINTRON [Suspect]
     Indication: HEPATITIS C
     Dosage: 60 MICROGRAM, UNK
     Route: 058
     Dates: start: 200512
  2. PEGINTRON [Suspect]
     Dosage: 60 MICROGRAM, UNK
     Route: 058
     Dates: start: 200711
  3. REBETOL [Suspect]
     Indication: HEPATITIS C
     Dosage: 200 MG, UNK
     Dates: start: 200512
  4. REBETOL [Suspect]
     Dosage: 200 UNK, UNK
     Route: 048
     Dates: start: 200511

REACTIONS (2)
  - Hepatocellular carcinoma [Unknown]
  - Pruritus [Unknown]
